FAERS Safety Report 4478381-2 (Version None)
Quarter: 2004Q4

REPORT INFORMATION
  Report Type: 
  Country: None (occurrence: None)
  Receive Date: 20041019
  Receipt Date: 20041008
  Transmission Date: 20050328
  Serious: Yes (Hospitalization)
  Sender: FDA-Public Use
  Company Number: PHBS2004JP13562

PATIENT
  Age: 60 Year
  Sex: Male

DRUGS (3)
  1. NEORAL [Suspect]
     Indication: APLASTIC ANAEMIA
     Dosage: 400 MG/DAY
     Route: 048
     Dates: start: 20040901, end: 20040901
  2. NEORAL [Suspect]
     Dosage: 200 MG/DAY
     Route: 048
     Dates: start: 20040901, end: 20040101
  3. ATGAM [Suspect]
     Indication: APLASTIC ANAEMIA
     Dates: start: 20040901

REACTIONS (9)
  - BLOOD UREA INCREASED [None]
  - C-REACTIVE PROTEIN INCREASED [None]
  - DIFFICULTY IN WALKING [None]
  - DYSSTASIA [None]
  - HYPOREFLEXIA [None]
  - INFECTION [None]
  - NERVE INJURY [None]
  - OEDEMA PERIPHERAL [None]
  - RENAL IMPAIRMENT [None]
